FAERS Safety Report 4586678-0 (Version None)
Quarter: 2005Q1

REPORT INFORMATION
  Report Type: 
  Country: None (occurrence: None)
  Receive Date: 20050218
  Receipt Date: 20041210
  Transmission Date: 20050727
  Serious: No
  Sender: FDA-Public Use
  Company Number: US-BRISTOL-MYERS SQUIBB COMPANY-12793089

PATIENT
  Age: 69 Year
  Sex: Female
  Weight: 86 kg

DRUGS (5)
  1. TAXOL [Suspect]
     Indication: NEOPLASM MALIGNANT
     Route: 042
     Dates: start: 20041129, end: 20041129
  2. CARBOPLATIN [Concomitant]
  3. BENADRYL [Concomitant]
     Indication: PREMEDICATION
  4. DETROL [Concomitant]
  5. SYNTHROID [Concomitant]

REACTIONS (3)
  - ASTHENIA [None]
  - MEDICATION ERROR [None]
  - STOMATITIS [None]
